FAERS Safety Report 22389635 (Version 1)
Quarter: 2023Q2

REPORT INFORMATION
  Report Type: Spontaneous
  Country: DE (occurrence: DE)
  Receive Date: 20230531
  Receipt Date: 20230531
  Transmission Date: 20230721
  Serious: Yes (Other)
  Sender: FDA-Public Use
  Company Number: DE-BAYER-2022A036151

PATIENT
  Age: 35 Year
  Sex: Female

DRUGS (1)
  1. LEVONORGESTREL [Suspect]
     Active Substance: LEVONORGESTREL
     Indication: Contraception
     Dosage: 14?G/DAY
     Route: 015
     Dates: start: 20200721

REACTIONS (6)
  - Pregnancy with contraceptive device [Not Recovered/Not Resolved]
  - Placenta praevia haemorrhage [None]
  - Placenta praevia [None]
  - Placenta accreta [None]
  - Premature rupture of membranes [None]
  - Drug ineffective [None]

NARRATIVE: CASE EVENT DATE: 20220201
